FAERS Safety Report 4817738-4 (Version None)
Quarter: 2005Q3

REPORT INFORMATION
  Report Type: 
  Country: None (occurrence: None)
  Receive Date: 20050929
  Receipt Date: 20050728
  Transmission Date: 20060218
  Serious: No
  Sender: FDA-Public Use
  Company Number: 05P-163-0306987-00

PATIENT
  Age: 60 Year
  Sex: Male
  Weight: 92.9874 kg

DRUGS (5)
  1. HUMIRA [Suspect]
     Indication: RHEUMATOID ARTHRITIS
     Dosage: 40 MG, 1 IN 2 WK, SUBCUTANEOUS
     Route: 058
     Dates: start: 20030101
  2. ZOCOR [Concomitant]
  3. NORTRIPTYLINE HCL [Concomitant]
  4. POTASSIUM [Concomitant]
  5. FUROSEMIDE [Concomitant]

REACTIONS (1)
  - JOINT SWELLING [None]
